FAERS Safety Report 5281542-6 (Version None)
Quarter: 2007Q1

REPORT INFORMATION
  Report Type: 
  Country: None (occurrence: None)
  Receive Date: 20070330
  Receipt Date: 20070326
  Transmission Date: 20070707
  Serious: Yes (Life-Threatening, Hospitalization)
  Sender: FDA-Public Use
  Company Number: PHRM2007FR01123

PATIENT
  Age: 34 Year
  Sex: Female

DRUGS (3)
  1. CELOCURIN [Suspect]
     Indication: INDUCTION OF ANAESTHESIA
     Dosage: UNK, UNK
     Route: 042
     Dates: start: 20061124
  2. ADRENALINE [Suspect]
     Indication: SHOCK
     Dates: start: 20061101
  3. SYNTOCINON [Suspect]
     Indication: UTERINE CONTRACTIONS ABNORMAL
     Route: 042
     Dates: start: 20061124, end: 20061124

REACTIONS (13)
  - ASPIRATION PLEURAL CAVITY [None]
  - CHEST DISCOMFORT [None]
  - DISSEMINATED INTRAVASCULAR COAGULATION [None]
  - GRAND MAL CONVULSION [None]
  - HAEMORRHAGE [None]
  - HYPOCAPNIA [None]
  - HYPOXIA [None]
  - LAPAROTOMY [None]
  - OXYGEN SATURATION DECREASED [None]
  - PLEURAL EFFUSION [None]
  - POSTPARTUM HAEMORRHAGE [None]
  - SHOCK [None]
  - TRANSFUSION [None]
